FAERS Safety Report 11976814 (Version 2)
Quarter: 2016Q1

REPORT INFORMATION
  Report Type: Report from Study
  Country: US (occurrence: US)
  Receive Date: 20160129
  Receipt Date: 20160314
  Transmission Date: 20160526
  Serious: Yes (Other)
  Sender: FDA-Public Use
  Company Number: US-AMGEN-USASL2016008060

PATIENT
  Age: 71 Year
  Sex: Female

DRUGS (1)
  1. PROLIA [Suspect]
     Active Substance: DENOSUMAB
     Indication: OSTEOPOROSIS POSTMENOPAUSAL
     Dosage: UNK
     Route: 065

REACTIONS (15)
  - Fall [Unknown]
  - Nerve compression [Unknown]
  - Contusion [Unknown]
  - Wrist fracture [Unknown]
  - Bone density decreased [Unknown]
  - Cardiac operation [Unknown]
  - Multiple fractures [Unknown]
  - Hip fracture [Unknown]
  - Compression fracture [Unknown]
  - Balance disorder [Unknown]
  - Head injury [Unknown]
  - Tooth fracture [Unknown]
  - Rib fracture [Unknown]
  - Hand fracture [Unknown]
  - Swelling [Unknown]

NARRATIVE: CASE EVENT DATE: 201507
